FAERS Safety Report 24255941 (Version 3)
Quarter: 2025Q3

REPORT INFORMATION
  Report Type: Report from Study
  Country: US (occurrence: US)
  Receive Date: 20240827
  Receipt Date: 20250810
  Transmission Date: 20251021
  Serious: No
  Sender: ALEXION PHARMACEUTICALS
  Company Number: US-AstraZeneca-CH-00690329A

PATIENT
  Sex: Male

DRUGS (1)
  1. ULTOMIRIS [Suspect]
     Active Substance: RAVULIZUMAB-CWVZ
     Indication: Myasthenia gravis
     Route: 065

REACTIONS (1)
  - Arthralgia [Not Recovered/Not Resolved]
